FAERS Safety Report 17295286 (Version 5)
Quarter: 2021Q2

REPORT INFORMATION
  Report Type: Spontaneous
  Country: US (occurrence: US)
  Receive Date: 20200121
  Receipt Date: 20210610
  Transmission Date: 20210716
  Serious: Yes (Other)
  Sender: FDA-Public Use
  Company Number: US-PFIZER INC-2020026439

PATIENT
  Age: 69 Year
  Sex: Female

DRUGS (3)
  1. XELJANZ [Suspect]
     Active Substance: TOFACITINIB CITRATE
     Dosage: 5 MG, 2X/DAY
     Route: 048
     Dates: start: 202002
  2. XELJANZ [Suspect]
     Active Substance: TOFACITINIB CITRATE
     Dosage: 5 MG
     Route: 048
     Dates: start: 20170515
  3. XELJANZ [Suspect]
     Active Substance: TOFACITINIB CITRATE
     Indication: RHEUMATOID ARTHRITIS
     Dosage: 5 MG, 2X/DAY
     Route: 048
     Dates: start: 2015

REACTIONS (8)
  - Hand deformity [Unknown]
  - Depression [Unknown]
  - Blood cholesterol increased [Not Recovered/Not Resolved]
  - Spinal stenosis [Unknown]
  - Rheumatoid arthritis [Recovering/Resolving]
  - Gait inability [Unknown]
  - Osteoarthritis [Not Recovered/Not Resolved]
  - Pain [Not Recovered/Not Resolved]
